FAERS Safety Report 25491509 (Version 1)
Quarter: 2025Q2

REPORT INFORMATION
  Report Type: Report from Study
  Country: GB (occurrence: GB)
  Receive Date: 20250629
  Receipt Date: 20250629
  Transmission Date: 20250717
  Serious: Yes (Other)
  Sender: ABBVIE
  Company Number: GB-ABBVIE-6345480

PATIENT
  Age: 78 Year
  Sex: Female

DRUGS (1)
  1. HUMIRA [Suspect]
     Active Substance: ADALIMUMAB
     Indication: Rheumatoid arthritis
     Dosage: 40MG/0.4ML. 2 PRE-FILLED DISPOSABLE INJECTION
     Route: 058
     Dates: end: 2025

REACTIONS (1)
  - Skin graft [Unknown]

NARRATIVE: CASE EVENT DATE: 20250401
